FAERS Safety Report 10996291 (Version 1)
Quarter: 2015Q2

REPORT INFORMATION
  Report Type: Spontaneous
  Country: US (occurrence: US)
  Receive Date: 20150408
  Receipt Date: 20150408
  Transmission Date: 20150821
  Serious: Yes (Other)
  Sender: FDA-Public Use
  Company Number: US-PAR PHARMACEUTICAL, INC-2015SCPR010458

PATIENT

DRUGS (2)
  1. AMLODIPINE BESYLATE + VALSARTAN [Suspect]
     Active Substance: AMLODIPINE BESYLATE\VALSARTAN
     Indication: PRODUCT USED FOR UNKNOWN INDICATION
     Dosage: 1 DF, UNKNOWN
     Route: 065
  2. AMLODIPINE BESYLATE + VALSARTAN [Suspect]
     Active Substance: AMLODIPINE BESYLATE\VALSARTAN
     Dosage: HALF TABLET, UNKNOWN
     Route: 065

REACTIONS (4)
  - Hypotension [Unknown]
  - Wrong technique in drug usage process [Unknown]
  - Intentional product use issue [Unknown]
  - Loss of consciousness [Unknown]
